FAERS Safety Report 14420191 (Version 1)
Quarter: 2018Q1

REPORT INFORMATION
  Report Type: Spontaneous
  Country: US (occurrence: US)
  Receive Date: 20180122
  Receipt Date: 20180122
  Transmission Date: 20180509
  Serious: Yes (Other)
  Sender: FDA-Public Use
  Company Number: US-ROCHE-1919017

PATIENT
  Age: 3 Year
  Sex: Male

DRUGS (1)
  1. RITUXAN [Suspect]
     Active Substance: RITUXIMAB
     Indication: PRODUCT USED FOR UNKNOWN INDICATION
     Route: 042
     Dates: start: 20170327

REACTIONS (5)
  - Serum sickness [Unknown]
  - Rash [Unknown]
  - Myalgia [Unknown]
  - Pyrexia [Unknown]
  - Arthralgia [Unknown]
